FAERS Safety Report 10252332 (Version 1)
Quarter: 2014Q2

REPORT INFORMATION
  Report Type: Spontaneous
  Country: DE (occurrence: None)
  Receive Date: 20140619
  Receipt Date: 20140619
  Transmission Date: 20141212
  Serious: Yes (Hospitalization, Other)
  Sender: FDA-Public Use
  Company Number: 2014PRN00001

PATIENT
  Age: 73 Year
  Sex: Male
  Weight: 93 kg

DRUGS (1)
  1. LEVETIRACETAM (LEVETIRACETAM) UNKNOWN [Suspect]

REACTIONS (7)
  - Foot fracture [None]
  - Somnolence [None]
  - Fatigue [None]
  - Drug clearance decreased [None]
  - Anticonvulsant drug level above therapeutic [None]
  - Coma [None]
  - Anaemia [None]
